FAERS Safety Report 13450502 (Version 3)
Quarter: 2018Q1

REPORT INFORMATION
  Report Type: Report from Study
  Country: None (occurrence: US)
  Receive Date: 20170418
  Receipt Date: 20180110
  Transmission Date: 20180508
  Serious: Yes (Other)
  Sender: FDA-Public Use
  Company Number: US-ABBVIE-16K-163-1801610-00

PATIENT
  Age: 63 Year
  Sex: Female

DRUGS (3)
  1. HUMIRA [Suspect]
     Active Substance: ADALIMUMAB
     Route: 058
     Dates: start: 20171228
  2. HUMIRA [Suspect]
     Active Substance: ADALIMUMAB
     Route: 058
     Dates: start: 20170228, end: 2017
  3. HUMIRA [Suspect]
     Active Substance: ADALIMUMAB
     Indication: RHEUMATOID ARTHRITIS
     Route: 058
     Dates: start: 20161121, end: 201702

REACTIONS (23)
  - Joint swelling [Not Recovered/Not Resolved]
  - Joint stiffness [Not Recovered/Not Resolved]
  - Sinusitis [Unknown]
  - Mobility decreased [Unknown]
  - Peripheral swelling [Unknown]
  - Peripheral swelling [Unknown]
  - Systemic lupus erythematosus [Unknown]
  - Anxiety [Not Recovered/Not Resolved]
  - Influenza [Unknown]
  - Pain [Unknown]
  - Nasopharyngitis [Unknown]
  - Ear pain [Unknown]
  - Arthralgia [Not Recovered/Not Resolved]
  - Muscle strain [Unknown]
  - Depression [Not Recovered/Not Resolved]
  - Poor quality sleep [Unknown]
  - Fatigue [Unknown]
  - Chills [Unknown]
  - Pain in extremity [Unknown]
  - Gait disturbance [Not Recovered/Not Resolved]
  - Loss of personal independence in daily activities [Not Recovered/Not Resolved]
  - Upper-airway cough syndrome [Unknown]
  - Muscle spasms [Unknown]

NARRATIVE: CASE EVENT DATE: 201611
